FAERS Safety Report 8777060 (Version 3)
Quarter: 2012Q4

REPORT INFORMATION
  Report Type: 
  Country: JP (occurrence: JP)
  Receive Date: 20120911
  Receipt Date: 20121002
  Transmission Date: 20130627
  Serious: Yes (Death, Hospitalization)
  Sender: FDA-Public Use
  Company Number: PHHY2012JP078391

PATIENT
  Age: 81 Year
  Sex: Female

DRUGS (10)
  1. EXELON PATCH [Suspect]
     Indication: DEMENTIA ALZHEIMER^S TYPE
     Dosage: 4.5 mg, Daily
     Route: 062
     Dates: start: 20111219, end: 20120116
  2. EXELON PATCH [Suspect]
     Dosage: 9 mg, Daily
     Route: 062
     Dates: start: 20120117, end: 20120214
  3. EXELON PATCH [Suspect]
     Dosage: 13.5 mg, Daily
     Route: 062
     Dates: start: 20120215, end: 20120313
  4. EXELON PATCH [Suspect]
     Dosage: 18 mg, Daily
     Route: 062
     Dates: start: 20120314
  5. MUCOSTA [Concomitant]
     Route: 048
     Dates: start: 20111219
  6. IBURONOL [Concomitant]
     Route: 048
     Dates: start: 20111219
  7. EXCELASE [Concomitant]
     Dosage: 3 DF, UNK
     Route: 048
     Dates: start: 20111219
  8. PAXIL [Concomitant]
     Route: 048
     Dates: start: 20111219
  9. MAGMITT KENEI [Concomitant]
     Route: 048
     Dates: start: 20111219
  10. POSTININ (OXYBUTYNIN HYDROCHLORIDE) [Concomitant]
     Route: 048
     Dates: start: 20111219

REACTIONS (9)
  - Bronchopulmonary aspergillosis [Fatal]
  - Blood beta-D-glucan increased [Fatal]
  - Aspergillus test positive [Fatal]
  - Lung infiltration [Fatal]
  - Lower respiratory tract inflammation [Fatal]
  - Pyrexia [Fatal]
  - Choking [Unknown]
  - General physical health deterioration [Unknown]
  - Listless [Unknown]
